FAERS Safety Report 21694239 (Version 1)
Quarter: 2022Q4

REPORT INFORMATION
  Report Type: Spontaneous
  Country: US (occurrence: US)
  Receive Date: 20221207
  Receipt Date: 20221207
  Transmission Date: 20230113
  Serious: No
  Sender: FDA-Public Use
  Company Number: US-PFIZER INC-2021476634

PATIENT
  Age: 63 Year
  Sex: Male

DRUGS (4)
  1. CAMPTOSAR [Suspect]
     Active Substance: IRINOTECAN HYDROCHLORIDE
     Indication: Colon cancer
     Dosage: 385.2 MG
  2. CAMPTOSAR [Suspect]
     Active Substance: IRINOTECAN HYDROCHLORIDE
     Indication: Colon cancer metastatic
     Dosage: 385.2 MG, CYCLIC (EVERY 14 DAYS)
  3. CAMPTOSAR [Suspect]
     Active Substance: IRINOTECAN HYDROCHLORIDE
     Dosage: 800 MG
  4. CAMPTOSAR [Suspect]
     Active Substance: IRINOTECAN HYDROCHLORIDE
     Dosage: 385.2 MG, CYCLIC (EVERY 14 DAYS)
     Dates: start: 20220506

REACTIONS (1)
  - Malaise [Unknown]
